FAERS Safety Report 7689062-6 (Version None)
Quarter: 2011Q3

REPORT INFORMATION
  Report Type: 
  Country: None (occurrence: None)
  Receive Date: 20110811
  Receipt Date: 20110726
  Transmission Date: 20111222
  Serious: Yes (Death, Other)
  Sender: FDA-Public Use
  Company Number: FK201101499

PATIENT
  Sex: Female

DRUGS (5)
  1. IFOSFAMIDE [Suspect]
     Indication: BONE SARCOMA
     Dosage: 1800 MG/M2
  2. THALIDOMIDE [Concomitant]
  3. METHOTREXATE [Suspect]
     Indication: BONE SARCOMA
  4. ETOPOSIDE [Suspect]
     Indication: BONE SARCOMA
     Dosage: 100 MG/M2
  5. DOXORUBICIN HCL [Concomitant]

REACTIONS (5)
  - MYELODYSPLASTIC SYNDROME [None]
  - THROMBOCYTOPENIA [None]
  - MUCOSAL INFLAMMATION [None]
  - ACUTE MYELOID LEUKAEMIA [None]
  - REFRACTORY ANAEMIA [None]
